FAERS Safety Report 14352882 (Version 1)
Quarter: 2018Q1

REPORT INFORMATION
  Report Type: Spontaneous
  Country: PL (occurrence: PL)
  Receive Date: 20180104
  Receipt Date: 20180104
  Transmission Date: 20180509
  Serious: Yes (Other)
  Sender: FDA-Public Use
  Company Number: PL-ALLERGAN-1800178US

PATIENT
  Age: 32 Year
  Sex: Female

DRUGS (2)
  1. LEVONORGESTREL - BP [Suspect]
     Active Substance: LEVONORGESTREL
     Indication: MENORRHAGIA
  2. LEVONORGESTREL - BP [Suspect]
     Active Substance: LEVONORGESTREL
     Indication: CONTRACEPTION
     Dosage: 52 MG
     Route: 015
     Dates: start: 20160923

REACTIONS (4)
  - Drug ineffective [Unknown]
  - Device dislocation [Unknown]
  - Genital haemorrhage [Unknown]
  - Pregnancy [Unknown]

NARRATIVE: CASE EVENT DATE: 20171221
